FAERS Safety Report 15203867 (Version 1)
Quarter: 2018Q3

REPORT INFORMATION
  Report Type: Spontaneous
  Country: US (occurrence: US)
  Receive Date: 20180726
  Receipt Date: 20180726
  Transmission Date: 20181010
  Serious: No
  Sender: FDA-Public Use
  Company Number: US-GILEAD-2018-0351928

PATIENT
  Age: 65 Year
  Sex: Male

DRUGS (1)
  1. EPCLUSA [Suspect]
     Active Substance: SOFOSBUVIR\VELPATASVIR
     Indication: CHRONIC HEPATITIS C
     Dosage: UNK
     Route: 065

REACTIONS (8)
  - Fatigue [Unknown]
  - Depression [Unknown]
  - Gastric disorder [Unknown]
  - Arthralgia [Unknown]
  - Feeling abnormal [Unknown]
  - Rash [Unknown]
  - Agitation [Unknown]
  - Mood altered [Unknown]
